FAERS Safety Report 7853662-0 (Version None)
Quarter: 2011Q4

REPORT INFORMATION
  Report Type: 
  Country: None (occurrence: None)
  Receive Date: 20111026
  Receipt Date: 20111024
  Transmission Date: 20120403
  Serious: Yes (Hospitalization)
  Sender: FDA-Public Use
  Company Number: US-JHP PHARMACEUTICALS, LLC-JHP201100475

PATIENT
  Age: 17 Year
  Sex: Male

DRUGS (9)
  1. ISOFLURANE [Concomitant]
     Indication: MAINTENANCE OF ANAESTHESIA
  2. EPINEPHRINE [Suspect]
     Indication: JOINT IRRIGATION
     Dosage: 3.3 MG/L WITH NORMAL SALINE
  3. LIDOCAINE [Concomitant]
     Indication: NERVE BLOCK
     Dosage: 20 ML, UNK
  4. PROPOFOL [Concomitant]
     Indication: INDUCTION OF ANAESTHESIA
  5. OXYGEN [Concomitant]
     Indication: MAINTENANCE OF ANAESTHESIA
  6. BUPIVACAINE HCL [Concomitant]
     Indication: NERVE BLOCK
     Dosage: 20 ML, UNK
  7. NITROUS OXIDE [Concomitant]
     Indication: MAINTENANCE OF ANAESTHESIA
  8. FENTANYL [Concomitant]
     Indication: MAINTENANCE OF ANAESTHESIA
  9. ZEMURON [Concomitant]
     Indication: INDUCTION OF ANAESTHESIA

REACTIONS (1)
  - POSTERIOR REVERSIBLE ENCEPHALOPATHY SYNDROME [None]
